FAERS Safety Report 7097822-8 (Version None)
Quarter: 2010Q4

REPORT INFORMATION
  Report Type: 
  Country: None (occurrence: None)
  Receive Date: 20101103
  Receipt Date: 20101021
  Transmission Date: 20110411
  Serious: Yes (Other)
  Sender: FDA-Public Use
  Company Number: 020793

PATIENT
  Age: 39 Year
  Sex: Male
  Weight: 77 kg

DRUGS (4)
  1. LACOSAMIDE [Suspect]
     Dosage: 400 MG,
     Dates: start: 20091214, end: 20091215
  2. KEPPRA [Suspect]
     Dosage: 2000 MG, 3000 MG,
     Dates: start: 20080108
  3. KEPPRA [Suspect]
     Dosage: 2000 MG, 3000 MG,
     Dates: start: 20080108
  4. DEPAKOTE [Concomitant]

REACTIONS (2)
  - CONDITION AGGRAVATED [None]
  - CONVULSION [None]
